FAERS Safety Report 8380577-4 (Version None)
Quarter: 2012Q2

REPORT INFORMATION
  Report Type: 
  Country: None (occurrence: None)
  Receive Date: 20120523
  Receipt Date: 20120516
  Transmission Date: 20120825
  Serious: Yes (Hospitalization, Other)
  Sender: FDA-Public Use
  Company Number: US-BAYER-2012-049559

PATIENT
  Age: 28 Year
  Sex: Female

DRUGS (5)
  1. YASMIN [Suspect]
  2. PERCOCET [Concomitant]
     Indication: PAIN
  3. INTRAVENOUS FLUIDS [Concomitant]
  4. ZOFRAN [Concomitant]
     Indication: NAUSEA
  5. VICODIN [Concomitant]
     Indication: PAIN

REACTIONS (2)
  - CHOLECYSTITIS ACUTE [None]
  - DEEP VEIN THROMBOSIS [None]
